FAERS Safety Report 6367278-9 (Version None)
Quarter: 2009Q3

REPORT INFORMATION
  Report Type: 
  Country: None (occurrence: None)
  Receive Date: 20090821
  Receipt Date: 20090630
  Transmission Date: 20100115
  Serious: No
  Sender: FDA-Public Use
  Company Number: 8044654

PATIENT
  Age: 23 Year
  Sex: Female
  Weight: 86.1 kg

DRUGS (11)
  1. CIMZIA [Suspect]
     Indication: CROHN'S DISEASE
     Dosage: 400 MG SC
     Route: 058
     Dates: start: 20090323, end: 20090406
  2. CIMZIA [Suspect]
     Indication: CROHN'S DISEASE
     Dosage: 400 MG SC
     Route: 058
     Dates: start: 20090420
  3. ZOLPIDEM [Concomitant]
  4. AZATHIOPRINE [Concomitant]
  5. PREDNISONE [Concomitant]
  6. METRONIDAZOLE [Concomitant]
  7. LOVAZA [Concomitant]
  8. MULTI-VITAMINS [Concomitant]
  9. PENTASA [Concomitant]
  10. OTC NAUSEA AND VOMITING MEDICATION [Concomitant]
  11. HYDROCODONE [Concomitant]

REACTIONS (5)
  - ARTHRALGIA [None]
  - BACK PAIN [None]
  - INJECTION SITE ERYTHEMA [None]
  - NEPHROLITHIASIS [None]
  - URINARY TRACT INFECTION [None]
